FAERS Safety Report 7617077-2 (Version None)
Quarter: 2011Q3

REPORT INFORMATION
  Report Type: 
  Country: None (occurrence: None)
  Receive Date: 20110718
  Receipt Date: 20110705
  Transmission Date: 20111222
  Serious: Yes (Hospitalization, Other)
  Sender: FDA-Public Use
  Company Number: US-ELI_LILLY_AND_COMPANY-US201104004262

PATIENT
  Sex: Male

DRUGS (11)
  1. VITAMIN D [Concomitant]
     Dosage: 500 IU, WEEKLY (1/W)
  2. VITAMIN B [Concomitant]
  3. ASCORBIC ACID [Concomitant]
  4. LOVAZA [Concomitant]
  5. ZOCOR [Concomitant]
  6. FORTEO [Suspect]
     Dosage: 20 UG, QD
  7. NAPROXEN [Concomitant]
  8. GLUCOSAMINE + CHONDROITIN [Concomitant]
  9. CALCIUM CARBONATE [Concomitant]
  10. FORTEO [Suspect]
     Indication: OSTEOPOROSIS
     Dosage: 20 UG, QD
     Dates: start: 20110301
  11. MULTI-VITAMIN [Concomitant]

REACTIONS (5)
  - THROMBOSIS [None]
  - PULMONARY EMBOLISM [None]
  - MOVEMENT DISORDER [None]
  - BACK PAIN [None]
  - DYSPNOEA [None]
